FAERS Safety Report 4431225-7 (Version None)
Quarter: 2004Q3

REPORT INFORMATION
  Report Type: 
  Country: None (occurrence: None)
  Receive Date: 20040824
  Receipt Date: 20040812
  Transmission Date: 20050211
  Serious: Yes (Hospitalization, Other)
  Sender: FDA-Public Use
  Company Number: DE-JNJFOC-20040704106

PATIENT
  Age: 93 Year
  Sex: Female

DRUGS (3)
  1. HALDOL [Suspect]
     Indication: DRUG USE FOR UNKNOWN INDICATION
  2. ZOPICLONE [Suspect]
     Indication: DRUG USE FOR UNKNOWN INDICATION
  3. MELPERONE [Suspect]
     Indication: DRUG USE FOR UNKNOWN INDICATION

REACTIONS (13)
  - ABNORMAL BEHAVIOUR [None]
  - ASTHENIA [None]
  - CHOKING [None]
  - DELIRIUM [None]
  - DRUG INEFFECTIVE [None]
  - DYSPHAGIA [None]
  - FACIAL PALSY [None]
  - FALL [None]
  - FEMORAL NECK FRACTURE [None]
  - OEDEMA PERIPHERAL [None]
  - PELVIC FRACTURE [None]
  - RHINITIS [None]
  - SALIVARY HYPERSECRETION [None]
